FAERS Safety Report 8004441-5 (Version None)
Quarter: 2011Q4

REPORT INFORMATION
  Report Type: 
  Country: None (occurrence: None)
  Receive Date: 20111221
  Receipt Date: 20111221
  Transmission Date: 20120403
  Serious: Yes (Other)
  Sender: FDA-Public Use
  Company Number: None

PATIENT
  Sex: Male
  Weight: 63.9572 kg

DRUGS (1)
  1. REVLIMID [Suspect]
     Dosage: ONCE INJ

REACTIONS (8)
  - DRY MOUTH [None]
  - CONSTIPATION [None]
  - MUSCLE SPASMS [None]
  - HYPOAESTHESIA [None]
  - PROCTALGIA [None]
  - VOMITING [None]
  - ABDOMINAL DISCOMFORT [None]
  - FATIGUE [None]
